FAERS Safety Report 22896040 (Version 3)
Quarter: 2023Q4

REPORT INFORMATION
  Report Type: Spontaneous
  Country: US (occurrence: US)
  Receive Date: 20230901
  Receipt Date: 20231106
  Transmission Date: 20240110
  Serious: No
  Sender: FDA-Public Use
  Company Number: US-BRISTOL-MYERS SQUIBB COMPANY-2023-123853

PATIENT
  Age: 80 Year
  Sex: Female
  Weight: 73.84 kg

DRUGS (5)
  1. CAMZYOS [Suspect]
     Active Substance: MAVACAMTEN
     Indication: Hypertrophic cardiomyopathy
     Route: 048
  2. CAMZYOS [Suspect]
     Active Substance: MAVACAMTEN
     Indication: Cardiomegaly
     Route: 048
     Dates: start: 20230629
  3. METOPROLOL [Suspect]
     Active Substance: METOPROLOL
     Indication: Product used for unknown indication
  4. MUCINEX [Concomitant]
     Active Substance: GUAIFENESIN
     Indication: Paranasal sinus hypersecretion
     Dosage: STOPPED B/C IT MADE HER FEEL SO BAD
  5. FIBERMUCIL [Concomitant]
     Indication: Blood cholesterol

REACTIONS (8)
  - Rash [Unknown]
  - Feeling hot [Unknown]
  - Blood pressure increased [Unknown]
  - Headache [Unknown]
  - Abdominal pain upper [Unknown]
  - Weight increased [Unknown]
  - Dizziness [Unknown]
  - Flatulence [Unknown]

NARRATIVE: CASE EVENT DATE: 20230101
